FAERS Safety Report 7955622-8 (Version None)
Quarter: 2011Q4

REPORT INFORMATION
  Report Type: 
  Country: None (occurrence: None)
  Receive Date: 20111203
  Receipt Date: 20111128
  Transmission Date: 20120403
  Serious: Yes (Hospitalization, Other)
  Sender: FDA-Public Use
  Company Number: US-ACCORD-011509

PATIENT
  Age: 34 Year
  Sex: Male

DRUGS (1)
  1. MYCOPHENOLATE MOFETIL [Suspect]
     Indication: CHORIORETINOPATHY
     Dosage: INITIALLY STARTED WITH 1 G BD MMF

REACTIONS (4)
  - CYTOMEGALOVIRUS COLITIS [None]
  - OFF LABEL USE [None]
  - CYTOMEGALOVIRUS VIRAEMIA [None]
  - CD4 LYMPHOCYTES DECREASED [None]
